FAERS Safety Report 4674944-X (Version None)
Quarter: 2005Q2

REPORT INFORMATION
  Report Type: 
  Country: None (occurrence: None)
  Receive Date: 20050525
  Receipt Date: 20050518
  Transmission Date: 20051028
  Serious: Yes (Hospitalization, Other)
  Sender: FDA-Public Use
  Company Number: 500511867BCC

PATIENT
  Age: 52 Year
  Sex: Male
  Weight: 92.9874 kg

DRUGS (2)
  1. ASPIRIN [Suspect]
     Indication: MYOCARDIAL INFARCTION
     Dosage: SEE IMAGE
     Dates: start: 19730101
  2. ASPIRIN [Suspect]
     Indication: PROPHYLAXIS
     Dosage: SEE IMAGE
     Dates: start: 19730101

REACTIONS (5)
  - ARRHYTHMIA [None]
  - CARDIAC ARREST [None]
  - CORONARY ARTERY OCCLUSION [None]
  - EMBOLISM [None]
  - MYOCARDIAL INFARCTION [None]
